FAERS Safety Report 9790699 (Version 1)
Quarter: 2013Q4

REPORT INFORMATION
  Report Type: Spontaneous
  Country: JP (occurrence: JP)
  Receive Date: 20131231
  Receipt Date: 20131231
  Transmission Date: 20140711
  Serious: Yes (Other)
  Sender: FDA-Public Use
  Company Number: JP-GLAXOSMITHKLINE-B0956129A

PATIENT
  Sex: 0

DRUGS (4)
  1. PAXIL [Suspect]
     Indication: DEPRESSION
     Dosage: 25MG PER DAY
     Route: 048
  2. CYMBALTA [Concomitant]
     Indication: DEPRESSION
     Route: 048
  3. HYPNOTIC + SEDATIVE [Concomitant]
     Indication: DEPRESSION
     Route: 065
  4. ANXIOLYTIC [Concomitant]

REACTIONS (2)
  - Delirium [Unknown]
  - Somnambulism [Unknown]
